FAERS Safety Report 19048328 (Version 1)
Quarter: 2021Q1

REPORT INFORMATION
  Report Type: Spontaneous
  Country: OM (occurrence: OM)
  Receive Date: 20210324
  Receipt Date: 20210324
  Transmission Date: 20210420
  Serious: Yes (Other)
  Sender: FDA-Public Use
  Company Number: OM-HIKMA PHARMACEUTICALS USA INC.-OM-H14001-21-01332

PATIENT
  Sex: Male

DRUGS (1)
  1. CEFTRIAXONE. [Suspect]
     Active Substance: CEFTRIAXONE
     Indication: PRODUCT USED FOR UNKNOWN INDICATION
     Dosage: UNKNOWN
     Route: 065

REACTIONS (5)
  - Pruritus [Unknown]
  - Dizziness [Unknown]
  - Hypoxia [Unknown]
  - Anaphylactic reaction [Unknown]
  - Hypotension [Unknown]
